FAERS Safety Report 4703998-7 (Version None)
Quarter: 2005Q2

REPORT INFORMATION
  Report Type: 
  Country: None (occurrence: None)
  Receive Date: 20050628
  Receipt Date: 20050615
  Transmission Date: 20051028
  Serious: Yes (Disabling)
  Sender: FDA-Public Use
  Company Number: US_0506118867

PATIENT
  Age: 56 Year
  Sex: Female

DRUGS (2)
  1. HUMULIN R [Suspect]
     Indication: DIABETES MELLITUS
     Dosage: 25 U/2 DAY
     Dates: start: 19900101
  2. HUMULIN N [Suspect]
     Indication: DIABETES MELLITUS
     Dosage: 20 U/2 DAY
     Dates: start: 19900101

REACTIONS (5)
  - BALANCE DISORDER [None]
  - DEMENTIA [None]
  - DEPRESSION [None]
  - HYPERTENSION [None]
  - VISUAL ACUITY REDUCED [None]
